FAERS Safety Report 13151074 (Version 1)
Quarter: 2017Q1

REPORT INFORMATION
  Report Type: Spontaneous
  Country: US (occurrence: US)
  Receive Date: 20170122
  Receipt Date: 20170122
  Transmission Date: 20170428
  Serious: Yes (Disabling, Other)
  Sender: FDA-Public Use
  Company Number: None

PATIENT
  Age: 42 Year
  Sex: Female
  Weight: 58.05 kg

DRUGS (24)
  1. MIDAZOLAM [Concomitant]
     Active Substance: MIDAZOLAM HYDROCHLORIDE
  2. ZEMBRIN [Concomitant]
  3. METHYLCOBALAMIN. [Concomitant]
     Active Substance: METHYLCOBALAMIN
  4. OMEGA-3 ACIDS [Concomitant]
     Active Substance: OMEGA-3 FATTY ACIDS
  5. N-ACETYL CYSTEINE [Concomitant]
  6. FENTANYL. [Concomitant]
     Active Substance: FENTANYL
  7. DEXAMETHASONE. [Suspect]
     Active Substance: DEXAMETHASONE
     Indication: PROCEDURAL NAUSEA
     Dosage: ?          QUANTITY:6 MG;OTHER FREQUENCY:ONCE;?
     Route: 042
     Dates: start: 20160520, end: 20160520
  8. PROGESTERONE. [Concomitant]
     Active Substance: PROGESTERONE
  9. IPRATROPIUM BROMIDE NASAL SOLUTION [Concomitant]
  10. LIDOCAINE. [Concomitant]
     Active Substance: LIDOCAINE
  11. C [Concomitant]
  12. LACTATED RINGER^S SOLUTION [Concomitant]
     Active Substance: RINGER^S SOLUTION, LACTATED
  13. CEFAZOLIN [Concomitant]
     Active Substance: CEFAZOLIN
  14. SOURCE NATURALS LIFE FORCE MULTIPLE [Concomitant]
  15. ZYFLAMEND [Concomitant]
  16. HERBAL FEMALE HORMONE SUPPORT [Concomitant]
  17. DEXAMETHASONE. [Suspect]
     Active Substance: DEXAMETHASONE
     Indication: PROCEDURAL VOMITING
     Dosage: ?          QUANTITY:6 MG;OTHER FREQUENCY:ONCE;?
     Route: 042
     Dates: start: 20160520, end: 20160520
  18. LIOTHYRONINE [Concomitant]
     Active Substance: LIOTHYRONINE
  19. ONDANSETRON [Concomitant]
     Active Substance: ONDANSETRON
  20. VITAMIN D3 [Concomitant]
     Active Substance: CHOLECALCIFEROL
  21. HERBAL ADRENAL SUPPORT [Concomitant]
  22. PROPOFOL. [Concomitant]
     Active Substance: PROPOFOL
  23. SEVOFLURANE. [Concomitant]
     Active Substance: SEVOFLURANE
  24. GABA [Concomitant]
     Active Substance: HOMEOPATHICS

REACTIONS (11)
  - Eczema [None]
  - Substance-induced psychotic disorder [None]
  - Weight decreased [None]
  - Suicidal ideation [None]
  - Major depression [None]
  - Oestradiol increased [None]
  - Progesterone increased [None]
  - Post-traumatic stress disorder [None]
  - Blood pressure increased [None]
  - Menorrhagia [None]
  - Mania [None]

NARRATIVE: CASE EVENT DATE: 20160520
